FAERS Safety Report 9221072 (Version 1)
Quarter: 2013Q2

REPORT INFORMATION
  Report Type: Other
  Country: US (occurrence: US)
  Receive Date: 20130409
  Receipt Date: 20130409
  Transmission Date: 20140414
  Serious: Yes (Other)
  Sender: FDA-Public Use
  Company Number: US-NAPPMUNDI-DEU-2013-0011072

PATIENT
  Age: 63 Year
  Sex: Female
  Weight: 109 kg

DRUGS (1)
  1. MORPHINE SULFATE (SIMILAR TO NDA 19-516) [Suspect]
     Indication: FRACTURE PAIN
     Dosage: 4 MG, SEE TEXT
     Route: 048

REACTIONS (2)
  - Loss of consciousness [Recovered/Resolved]
  - Respiratory depression [Unknown]
